FAERS Safety Report 7490283-6 (Version None)
Quarter: 2011Q2

REPORT INFORMATION
  Report Type: 
  Country: None (occurrence: None)
  Receive Date: 20110519
  Receipt Date: 20100804
  Transmission Date: 20111010
  Serious: Yes (Other)
  Sender: FDA-Public Use
  Company Number: US-BRISTOL-MYERS SQUIBB COMPANY-15163355

PATIENT
  Sex: Male

DRUGS (1)
  1. BARACLUDE [Suspect]
     Dosage: ALSO ON MAR2010,TABS
     Dates: start: 20100101

REACTIONS (3)
  - DRUG INEFFECTIVE [None]
  - MALAISE [None]
  - ABDOMINAL DISTENSION [None]
